FAERS Safety Report 16807980 (Version 1)
Quarter: 2019Q3

REPORT INFORMATION
  Report Type: Spontaneous
  Country: PT (occurrence: PT)
  Receive Date: 20190916
  Receipt Date: 20190916
  Transmission Date: 20191005
  Serious: Yes (Death, Other)
  Sender: FDA-Public Use
  Company Number: PT-ROCHE-2404418

PATIENT
  Age: 36 Year
  Sex: Male

DRUGS (1)
  1. RITUXIMAB. [Suspect]
     Active Substance: RITUXIMAB
     Indication: CASTLEMAN^S DISEASE
     Route: 065

REACTIONS (10)
  - Cough [Unknown]
  - Castleman^s disease [Unknown]
  - Lymphadenopathy [Unknown]
  - Intentional product use issue [Unknown]
  - Pyrexia [Unknown]
  - Hepatic function abnormal [Unknown]
  - Splenomegaly [Fatal]
  - Pneumonia pneumococcal [Fatal]
  - Sepsis [Fatal]
  - Off label use [Unknown]
